FAERS Safety Report 8030321-5 (Version None)
Quarter: 2012Q1

REPORT INFORMATION
  Report Type: 
  Country: None (occurrence: None)
  Receive Date: 20120109
  Receipt Date: 20120104
  Transmission Date: 20120608
  Serious: Yes (Other)
  Sender: FDA-Public Use
  Company Number: PHEH2011US009220

PATIENT
  Sex: Male
  Weight: 71 kg

DRUGS (14)
  1. ATENOLOL [Concomitant]
     Dosage: 50 MG, DAILY
     Route: 048
  2. ISOSORBIDE MONONITRATE [Concomitant]
     Dosage: 30 MG, BID
     Route: 048
  3. MULTI-VITAMINS [Concomitant]
     Dosage: 1 DF, MONDAY, WEDNESDAY AND FRIDAY
     Route: 048
  4. EXJADE [Suspect]
     Dosage: 250 MG, DAILY
     Route: 048
  5. NITROGLICERINA [Concomitant]
     Dosage: 1 MG, PRN
     Route: 048
  6. DEFERASIROX [Concomitant]
     Dosage: 250 MG, DAILY
     Route: 048
     Dates: start: 20110831
  7. ALPRAZOLAM [Concomitant]
     Indication: ANXIETY
     Dosage: 0.5 MG, PRN
     Route: 048
  8. EXJADE [Suspect]
     Indication: IRON OVERLOAD
     Dosage: 750 MG QD
     Route: 048
     Dates: start: 20110707
  9. FUROSEMIDE [Concomitant]
     Dosage: 40 MG, DAILY
     Route: 048
  10. LUTEIN [Concomitant]
     Route: 048
  11. DIPHENHYDRAMINE W/PARACETAMOL [Concomitant]
     Route: 048
  12. PREDNISONE TAB [Concomitant]
     Dosage: 40 MG, DAILY
  13. FISH OIL [Concomitant]
     Route: 048
  14. ALLOPURINOL [Concomitant]
     Dosage: 100 MG, DAILY
     Route: 048

REACTIONS (4)
  - BLOOD PRESSURE DIASTOLIC DECREASED [None]
  - DIARRHOEA [None]
  - WEIGHT DECREASED [None]
  - ANXIETY [None]
